FAERS Safety Report 6313345-5 (Version None)
Quarter: 2009Q3

REPORT INFORMATION
  Report Type: 
  Country: None (occurrence: None)
  Receive Date: 20090818
  Receipt Date: 20090811
  Transmission Date: 20100115
  Serious: Yes (Other)
  Sender: FDA-Public Use
  Company Number: B0588133A

PATIENT
  Age: 64 Year
  Sex: Male

DRUGS (6)
  1. NICORETTE [Suspect]
     Dosage: 10MG PER DAY
     Route: 062
     Dates: start: 20080701, end: 20080722
  2. ACETAMINOPHEN W/ CODEINE [Concomitant]
     Route: 065
  3. ATENOLOL [Concomitant]
     Route: 048
     Dates: start: 20060601
  4. SIMVASTATIN [Concomitant]
     Route: 048
     Dates: start: 20060601
  5. AMLODIPINE [Concomitant]
     Route: 048
     Dates: start: 20060601
  6. ASPIRIN [Concomitant]
     Route: 048

REACTIONS (12)
  - ANXIETY [None]
  - ASTHENIA [None]
  - CONSTIPATION [None]
  - DECREASED APPETITE [None]
  - DEPRESSION [None]
  - DIARRHOEA [None]
  - DISTURBANCE IN ATTENTION [None]
  - FATIGUE [None]
  - INSOMNIA [None]
  - OVERDOSE [None]
  - RESTLESSNESS [None]
  - SELF ESTEEM DECREASED [None]
